FAERS Safety Report 6939405-3 (Version None)
Quarter: 2010Q3

REPORT INFORMATION
  Report Type: 
  Country: None (occurrence: None)
  Receive Date: 20100819
  Receipt Date: 20100806
  Transmission Date: 20110219
  Serious: Yes (Hospitalization, Disabling, Other)
  Sender: FDA-Public Use
  Company Number: 2009AL005830

PATIENT
  Age: 54 Year
  Sex: Female

DRUGS (20)
  1. METOCLOPRAMIDE [Suspect]
     Indication: DYSPEPSIA
     Dosage: 10 MG;
     Dates: start: 20030805, end: 20081201
  2. LASIX [Concomitant]
  3. SINGULAIR [Concomitant]
  4. BACLOFEN [Concomitant]
  5. HYDROMORPHONE [Concomitant]
  6. COUMADIN [Concomitant]
  7. NEURONTIN [Concomitant]
  8. CARISOPRODOL [Concomitant]
  9. POTASSIUM [Concomitant]
  10. RESTORIL [Concomitant]
  11. LEXAPRO [Concomitant]
  12. BEXTRA [Concomitant]
  13. NEXIUM [Concomitant]
  14. LOVENOX [Concomitant]
  15. ULTRACET [Concomitant]
  16. DILAUDID [Concomitant]
  17. SOMA [Concomitant]
  18. ZEGERID [Concomitant]
  19. GLUCOPHAGE ^UNS^ [Concomitant]
  20. VYTORIN [Concomitant]

REACTIONS (49)
  - ABDOMINAL PAIN [None]
  - ABDOMINAL PAIN UPPER [None]
  - ACTIVITIES OF DAILY LIVING IMPAIRED [None]
  - ANXIETY [None]
  - ARTHRITIS [None]
  - BACK PAIN [None]
  - BLOOD GLUCOSE INCREASED [None]
  - CHRONIC OBSTRUCTIVE PULMONARY DISEASE [None]
  - COAGULOPATHY [None]
  - CONSTIPATION [None]
  - DEEP VEIN THROMBOSIS [None]
  - DEFORMITY [None]
  - DEHYDRATION [None]
  - DEPRESSION [None]
  - EAR HAEMORRHAGE [None]
  - FLUID RETENTION [None]
  - GASTRIC ULCER [None]
  - GASTROOESOPHAGEAL REFLUX DISEASE [None]
  - GROIN PAIN [None]
  - HAEMOCHROMATOSIS [None]
  - HIATUS HERNIA [None]
  - HYPERLIPIDAEMIA [None]
  - HYPERTENSION [None]
  - HYPOTHYROIDISM [None]
  - HYPOVOLAEMIA [None]
  - JAW DISORDER [None]
  - LOSS OF CONSCIOUSNESS [None]
  - MENTAL DISORDER [None]
  - MULTIPLE INJURIES [None]
  - NEUROPATHY PERIPHERAL [None]
  - OESOPHAGITIS [None]
  - ORTHOSTATIC HYPOTENSION [None]
  - PAIN [None]
  - PAIN IN EXTREMITY [None]
  - PALPITATIONS [None]
  - POLLAKIURIA [None]
  - PULMONARY EMBOLISM [None]
  - PULMONARY HYPERTENSION [None]
  - RESTLESS LEGS SYNDROME [None]
  - SELF-MEDICATION [None]
  - SINUSITIS [None]
  - SLEEP APNOEA SYNDROME [None]
  - SWELLING [None]
  - TARDIVE DYSKINESIA [None]
  - TONGUE DISORDER [None]
  - TYPE 2 DIABETES MELLITUS [None]
  - URINARY TRACT INFECTION [None]
  - VITAMIN B COMPLEX DEFICIENCY [None]
  - WEIGHT INCREASED [None]
